FAERS Safety Report 16540393 (Version 2)
Quarter: 2019Q4

REPORT INFORMATION
  Report Type: Spontaneous
  Country: CA (occurrence: CA)
  Receive Date: 20190708
  Receipt Date: 20191021
  Transmission Date: 20200122
  Serious: No
  Sender: FDA-Public Use
  Company Number: CA-PFIZER INC-2019280438

PATIENT
  Age: 80 Year
  Sex: Male

DRUGS (1)
  1. FRAGMIN [Suspect]
     Active Substance: DALTEPARIN SODIUM
     Indication: EMBOLISM
     Dosage: UNK
     Dates: start: 2019

REACTIONS (3)
  - Injection site erythema [Recovered/Resolved]
  - Contusion [Recovered/Resolved]
  - Injection site mass [Unknown]
